FAERS Safety Report 6866166-9 (Version None)
Quarter: 2010Q3

REPORT INFORMATION
  Report Type: 
  Country: None (occurrence: None)
  Receive Date: 20100722
  Receipt Date: 20100722
  Transmission Date: 20110219
  Serious: Yes (Other)
  Sender: FDA-Public Use
  Company Number: US-JNJFOC-20100605387

PATIENT
  Sex: Female
  Weight: 87.09 kg

DRUGS (9)
  1. LEVAQUIN [Suspect]
     Indication: SINUSITIS
     Route: 048
  2. LEVAQUIN [Suspect]
     Route: 048
  3. LEVAQUIN [Suspect]
     Indication: LUNG INFECTION
     Route: 048
  4. LEVAQUIN [Suspect]
     Route: 048
  5. QVAR 40 [Concomitant]
     Indication: ASTHMA
     Route: 065
  6. PREDNISONE [Concomitant]
     Indication: ASTHMA
     Route: 065
  7. PREVACID [Concomitant]
     Indication: GASTROOESOPHAGEAL REFLUX DISEASE
     Route: 065
  8. KLOR-CON [Concomitant]
     Indication: MINERAL SUPPLEMENTATION
     Route: 065
  9. AZITHROMYCIN [Concomitant]
     Indication: LUNG INFECTION
     Route: 065

REACTIONS (2)
  - DIZZINESS [None]
  - VENTRICULAR EXTRASYSTOLES [None]
